FAERS Safety Report 16629168 (Version 1)
Quarter: 2019Q3

REPORT INFORMATION
  Report Type: Spontaneous
  Country: US (occurrence: US)
  Receive Date: 20190725
  Receipt Date: 20190725
  Transmission Date: 20191004
  Serious: Yes (Other)
  Sender: FDA-Public Use
  Company Number: US-STRIDES ARCOLAB LIMITED-2018SP004880

PATIENT

DRUGS (3)
  1. MYCOPHENOLATE MOFETIL. [Suspect]
     Active Substance: MYCOPHENOLATE MOFETIL
     Indication: ENCEPHALITIS AUTOIMMUNE
     Dosage: 1000 MG/1500 MG DAILY
     Route: 065
  2. PREDNISOLONE. [Suspect]
     Active Substance: PREDNISOLONE
     Dosage: DRADUAL TAPER, UNK
     Route: 065
  3. PREDNISOLONE. [Suspect]
     Active Substance: PREDNISOLONE
     Indication: ENCEPHALITIS AUTOIMMUNE
     Dosage: 50 MG, DAILY
     Route: 048

REACTIONS (12)
  - Large intestinal ulcer [Recovered/Resolved]
  - Malaise [Recovered/Resolved]
  - Duodenal ulcer [Recovered/Resolved]
  - Pancytopenia [Recovered/Resolved]
  - Cytomegalovirus colitis [Recovered/Resolved]
  - Viraemia [Recovered/Resolved]
  - Gastric ulcer [Recovered/Resolved]
  - Abdominal pain [Recovered/Resolved]
  - Pyrexia [Recovered/Resolved]
  - Diarrhoea [Recovered/Resolved]
  - Lymphopenia [Recovered/Resolved]
  - Haematochezia [Recovered/Resolved]
